FAERS Safety Report 5580378-6 (Version None)
Quarter: 2008Q1

REPORT INFORMATION
  Report Type: 
  Country: None (occurrence: None)
  Receive Date: 20080103
  Receipt Date: 20071224
  Transmission Date: 20080703
  Serious: Yes (Other)
  Sender: FDA-Public Use
  Company Number: NL-JNJFOC-20071205945

PATIENT
  Sex: Male
  Weight: 75 kg

DRUGS (8)
  1. TOPAMAX [Suspect]
     Indication: ANXIETY
     Route: 048
  2. EFFEXOR XR [Suspect]
     Indication: DEPRESSION
     Route: 048
  3. BISOPROLOLI FUMARAS [Concomitant]
  4. ASCAL CARDIO [Concomitant]
  5. NIFEDIPINUM [Concomitant]
  6. APROVEL [Concomitant]
  7. SIMVASTATINUM [Concomitant]
  8. BUMETANIDE [Concomitant]

REACTIONS (1)
  - DEMENTIA [None]
